FAERS Safety Report 6594507-9 (Version None)
Quarter: 2010Q1

REPORT INFORMATION
  Report Type: 
  Country: None (occurrence: None)
  Receive Date: 20100222
  Receipt Date: 20100215
  Transmission Date: 20100710
  Serious: Yes (Other)
  Sender: FDA-Public Use
  Company Number: GB-SANOFI-AVENTIS-2010SA009133

PATIENT
  Sex: Male
  Weight: 84 kg

DRUGS (1)
  1. LANTUS [Suspect]
     Route: 058
     Dates: start: 20090201, end: 20091101

REACTIONS (1)
  - DIARRHOEA [None]
